FAERS Safety Report 8412034 (Version 3)
Quarter: 2013Q3

REPORT INFORMATION
  Report Type: Report from Study
  Country: US (occurrence: US)
  Receive Date: 20120217
  Receipt Date: 20130730
  Transmission Date: 20140515
  Serious: Yes (Hospitalization)
  Sender: FDA-Public Use
  Company Number: US-JNJFOC-20120206251

PATIENT
  Age: 4 Year
  Sex: Female
  Weight: 17.7 kg

DRUGS (5)
  1. REMICADE [Suspect]
     Indication: CROHN^S DISEASE
     Route: 042
     Dates: start: 20101109, end: 201202
  2. BUDESONIDE [Concomitant]
  3. PROBIOTICS [Concomitant]
  4. 5-ASA [Concomitant]
  5. PREVACID [Concomitant]

REACTIONS (1)
  - Crohn^s disease [Recovered/Resolved]
